FAERS Safety Report 13978774 (Version 1)
Quarter: 2017Q3

REPORT INFORMATION
  Report Type: Spontaneous
  Country: FR (occurrence: FR)
  Receive Date: 20170915
  Receipt Date: 20170915
  Transmission Date: 20171128
  Serious: Yes (Hospitalization)
  Sender: FDA-Public Use
  Company Number: FR-MERCK KGAA-2026480

PATIENT
  Age: 69 Year
  Sex: Female

DRUGS (7)
  1. COUMADINE [Concomitant]
     Active Substance: WARFARIN SODIUM
     Route: 065
  2. TRAMADOL. [Concomitant]
     Active Substance: TRAMADOL
     Route: 065
  3. FLECAINE [Concomitant]
     Active Substance: FLECAINIDE
     Route: 065
  4. NOVOTHYROX [Suspect]
     Active Substance: LEVOTHYROXINE SODIUM
     Indication: THYROID CANCER
     Route: 065
     Dates: start: 201704
  5. AERIUS [Concomitant]
     Active Substance: DESLORATADINE
     Route: 065
  6. VENTOLINE [Concomitant]
     Active Substance: ALBUTEROL
     Route: 065
  7. INNOVAIR [Concomitant]
     Active Substance: BECLOMETHASONE DIPROPIONATE\FORMOTEROL
     Route: 065

REACTIONS (9)
  - Gait disturbance [Unknown]
  - Fatigue [Unknown]
  - Arthropathy [Unknown]
  - Alopecia [Unknown]
  - Dyspnoea [Unknown]
  - Cardiac disorder [Unknown]
  - Weight increased [Unknown]
  - Arrhythmia [Unknown]
  - Headache [Unknown]

NARRATIVE: CASE EVENT DATE: 201704
